FAERS Safety Report 10477747 (Version 2)
Quarter: 2014Q3

REPORT INFORMATION
  Report Type: Not Available
  Country: US (occurrence: US)
  Receive Date: 20140926
  Receipt Date: 20140926
  Transmission Date: 20150326
  Serious: No
  Sender: FDA-Public Use
  Company Number: US-LUPIN PHARMACEUTICALS INC.-E2B_00002106

PATIENT
  Age: 59 Year
  Sex: Male
  Weight: 78.54 kg

DRUGS (3)
  1. PRAVASTATIN SODIUM TABLETS USP 80MG [Suspect]
     Active Substance: PRAVASTATIN SODIUM
     Dates: start: 20140529
  2. PRAVASTATIN SODIUM TABLETS USP 80MG [Suspect]
     Active Substance: PRAVASTATIN SODIUM
     Indication: HYPERLIPIDAEMIA
     Dates: start: 20130531
  3. VITAMIN B [Concomitant]
     Active Substance: VITAMIN B
     Indication: VITAMIN SUPPLEMENTATION

REACTIONS (1)
  - Therapeutic response changed [Unknown]

NARRATIVE: CASE EVENT DATE: 201405
